FAERS Safety Report 9538032 (Version 2)
Quarter: 2013Q3

REPORT INFORMATION
  Report Type: Spontaneous
  Country: US (occurrence: US)
  Receive Date: 20130920
  Receipt Date: 20130920
  Transmission Date: 20140515
  Serious: Yes (Hospitalization, Other)
  Sender: FDA-Public Use
  Company Number: US-AMGEN-USASP2013055260

PATIENT
  Age: 62 Year
  Sex: Female
  Weight: 101.13 kg

DRUGS (14)
  1. ENBREL [Suspect]
     Indication: RHEUMATOID ARTHRITIS
     Dosage: 50 MG, QWK
     Route: 058
     Dates: start: 20110728, end: 20111021
  2. ATORVASTATIN [Concomitant]
     Dosage: UNK
  3. HUMALOG [Concomitant]
     Dosage: UNK
  4. CALCIUM +D                         /00944201/ [Concomitant]
     Dosage: UNK
  5. LABETALOL [Concomitant]
     Dosage: UNK
  6. FERREX [Concomitant]
     Dosage: UNK
  7. FUROSEMIDE [Concomitant]
     Dosage: UNK
  8. LANTUS [Concomitant]
     Dosage: UNK
  9. LEUCOVORIN                         /00566702/ [Concomitant]
     Dosage: UNK
  10. PREDNISONE [Concomitant]
     Dosage: UNK
  11. PLAQUENIL                          /00072602/ [Concomitant]
     Dosage: UNK
  12. OMEPRAZOLE [Concomitant]
     Dosage: UNK
  13. METHOTREXATE [Concomitant]
     Dosage: UNK
  14. LISINOPRIL [Concomitant]
     Dosage: UNK

REACTIONS (3)
  - Pneumonitis [Unknown]
  - Pneumonia [Recovered/Resolved]
  - Drug hypersensitivity [Unknown]
